FAERS Safety Report 10100926 (Version 2)
Quarter: 2014Q2

REPORT INFORMATION
  Report Type: Spontaneous
  Country: CN (occurrence: CN)
  Receive Date: 20140423
  Receipt Date: 20140516
  Transmission Date: 20141212
  Serious: Yes (Hospitalization)
  Sender: FDA-Public Use
  Company Number: CN-JNJFOC-20140410265

PATIENT
  Age: 1 Year
  Sex: Male

DRUGS (2)
  1. MOTRIN [Suspect]
     Route: 048
  2. MOTRIN [Suspect]
     Indication: PYREXIA
     Route: 048
     Dates: start: 20131226, end: 20131228

REACTIONS (3)
  - Leukopenia [Unknown]
  - Bronchitis [Unknown]
  - Tonsillitis [Unknown]
